FAERS Safety Report 20428829 (Version 1)
Quarter: 2022Q1

REPORT INFORMATION
  Report Type: Spontaneous
  Country: US (occurrence: None)
  Receive Date: 20220203
  Receipt Date: 20220203
  Transmission Date: 20220424
  Serious: Yes (Hospitalization)
  Sender: FDA-Public Use
  Company Number: None

PATIENT
  Age: 85 Year
  Sex: Male

DRUGS (6)
  1. SOTROVIMAB [Suspect]
     Active Substance: SOTROVIMAB
     Indication: COVID-19
     Dosage: OTHER FREQUENCY : ONCE;?
     Route: 042
     Dates: start: 20220121, end: 20220121
  2. aspirin 81 mg tablet [Concomitant]
  3. BASAGLAR KWIKPEN U-100 INSULIN 100 unit/mL (3 mL) solostar pen [Concomitant]
  4. lisinopriL-hydrochlorothiazide (ZESTORETIC) 20-25 mg per tablet [Concomitant]
  5. metoprolol succinate XL (TopROL XL) 25 mg 24 hr tablet [Concomitant]
  6. pioglitazone (ACTOS) 15 mg tablet [Concomitant]

REACTIONS (9)
  - Hyponatraemia [None]
  - Diastolic dysfunction [None]
  - Hypoglycaemia [None]
  - Hypertension [None]
  - Blood creatinine increased [None]
  - Suicidal ideation [None]
  - Depression [None]
  - Asthenia [None]
  - Fatigue [None]

NARRATIVE: CASE EVENT DATE: 20220121
